FAERS Safety Report 17137633 (Version 3)
Quarter: 2020Q1

REPORT INFORMATION
  Report Type: Report from Study
  Country: US (occurrence: US)
  Receive Date: 20191210
  Receipt Date: 20200110
  Transmission Date: 20200409
  Serious: Yes (Other)
  Sender: FDA-Public Use
  Company Number: US-SA-2019SA340202

PATIENT
  Age: 39 Year
  Sex: Female

DRUGS (2)
  1. CAPLACIZUMAB-YHDP [Suspect]
     Active Substance: CAPLACIZUMAB-YHDP
     Indication: THROMBOTIC MICROANGIOPATHY
     Dosage: 11 MG, UNK
     Route: 058
  2. CAPLACIZUMAB-YHDP [Suspect]
     Active Substance: CAPLACIZUMAB-YHDP
     Dosage: 11 MG, UNK
     Route: 030

REACTIONS (4)
  - Alopecia [Unknown]
  - Thrombotic thrombocytopenic purpura [Unknown]
  - Menorrhagia [Unknown]
  - Incorrect route of product administration [Unknown]
